FAERS Safety Report 10742552 (Version 1)
Quarter: 2015Q1

REPORT INFORMATION
  Report Type: Spontaneous
  Country: US (occurrence: None)
  Receive Date: 20150123
  Receipt Date: 20150123
  Transmission Date: 20150721
  Serious: Yes (Hospitalization, Disabling)
  Sender: FDA-Public Use
  Company Number: None

PATIENT
  Age: 51 Year
  Sex: Female
  Weight: 53.07 kg

DRUGS (1)
  1. TECFIDERA [Suspect]
     Active Substance: DIMETHYL FUMARATE
     Indication: RELAPSING-REMITTING MULTIPLE SCLEROSIS
     Dosage: 240/2 AND 120/2
     Route: 048
     Dates: start: 20140710, end: 20141117

REACTIONS (11)
  - Dry eye [None]
  - Vision blurred [None]
  - Ear disorder [None]
  - Urinary tract infection [None]
  - Halo vision [None]
  - Eye irritation [None]
  - Dry mouth [None]
  - Blood oestrogen increased [None]
  - Cataract [None]
  - Renal pain [None]
  - Nasal dryness [None]

NARRATIVE: CASE EVENT DATE: 20141218
